FAERS Safety Report 12698403 (Version 1)
Quarter: 2016Q3

REPORT INFORMATION
  Report Type: Report from Study
  Country: IE (occurrence: IE)
  Receive Date: 20160830
  Receipt Date: 20160830
  Transmission Date: 20161109
  Serious: Yes (Hospitalization, Other)
  Sender: FDA-Public Use
  Company Number: IE-BRISTOL-MYERS SQUIBB COMPANY-BMS-2016-015532

PATIENT
  Age: 71 Year
  Sex: Male

DRUGS (2)
  1. TINZAPARIN [Concomitant]
     Active Substance: TINZAPARIN
     Indication: ISCHAEMIA
     Route: 065
  2. NIVOLUMAB [Suspect]
     Active Substance: NIVOLUMAB
     Indication: NON-SMALL CELL LUNG CANCER
     Dosage: UNK UNK, Q2WK
     Route: 065
     Dates: end: 20160706

REACTIONS (4)
  - Thoracic cavity drainage [Unknown]
  - Malignant neoplasm progression [Unknown]
  - Malignant pleural effusion [Not Recovered/Not Resolved]
  - Pathological fracture [Unknown]

NARRATIVE: CASE EVENT DATE: 20160215
